FAERS Safety Report 4855287-8 (Version None)
Quarter: 2005Q4

REPORT INFORMATION
  Report Type: 
  Country: None (occurrence: None)
  Receive Date: 20051125
  Receipt Date: 20050719
  Transmission Date: 20060501
  Serious: Yes (Hospitalization)
  Sender: FDA-Public Use
  Company Number: US-JNJFOC-20050703961

PATIENT
  Age: 56 Year
  Sex: Male

DRUGS (2)
  1. LEVAQUIN [Suspect]
     Indication: UPPER RESPIRATORY TRACT INFECTION
     Dosage: ORAL
     Route: 048
     Dates: start: 20050601
  2. STATINS (CHOLESTEROL - AND TRIGLYCERIDE REDUCERS) [Concomitant]

REACTIONS (1)
  - MYOCARDIAL INFARCTION [None]
